FAERS Safety Report 20526670 (Version 1)
Quarter: 2022Q1

REPORT INFORMATION
  Report Type: Spontaneous
  Country: AR (occurrence: AR)
  Receive Date: 20220228
  Receipt Date: 20220228
  Transmission Date: 20220423
  Serious: Yes (Other)
  Sender: FDA-Public Use
  Company Number: AR-PFIZER INC-202200282459

PATIENT
  Age: 78 Year
  Sex: Female

DRUGS (2)
  1. XELJANZ XR [Suspect]
     Active Substance: TOFACITINIB CITRATE
     Indication: Rheumatoid arthritis
     Dosage: 11 MG, 1X/DAY
     Dates: start: 20200514
  2. COLLAGEN [Concomitant]
     Active Substance: COLLAGEN
     Dosage: UNK

REACTIONS (5)
  - Depression [Not Recovered/Not Resolved]
  - Condition aggravated [Not Recovered/Not Resolved]
  - Mental disorder [Not Recovered/Not Resolved]
  - Tendonitis [Not Recovered/Not Resolved]
  - Insomnia [Not Recovered/Not Resolved]
